FAERS Safety Report 4369195-2 (Version None)
Quarter: 2004Q2

REPORT INFORMATION
  Report Type: 
  Country: None (occurrence: None)
  Receive Date: 20040527
  Receipt Date: 20040510
  Transmission Date: 20050107
  Serious: Yes (Other)
  Sender: FDA-Public Use
  Company Number: US_0405102997

PATIENT
  Age: 73 Year
  Sex: Female

DRUGS (5)
  1. EVISTA [Suspect]
  2. FOSAMAX [Concomitant]
  3. ACTONEL [Concomitant]
  4. MIACALCIN [Concomitant]
  5. HORMONE REPLACEMENT THERAPY [Concomitant]

REACTIONS (2)
  - ABDOMINAL DISCOMFORT [None]
  - FRACTURE [None]
